FAERS Safety Report 8786024 (Version 1)
Quarter: 2012Q4

REPORT INFORMATION
  Report Type: Report from Study
  Country: US (occurrence: US)
  Receive Date: 20120914
  Receipt Date: 20120914
  Transmission Date: 20130627
  Serious: Yes (Hospitalization)
  Sender: FDA-Public Use
  Company Number: US-VERTEX PHARMACEUTICAL INC.-AE-2012-010035

PATIENT

DRUGS (4)
  1. INCIVEK [Suspect]
     Indication: HEPATITIS C
     Route: 048
     Dates: start: 20120418, end: 20120620
  2. RIBAVIRIN [Concomitant]
     Indication: HEPATITIS C
     Dates: start: 20120418
  3. RIBAVIRIN [Concomitant]
  4. PEGASYS [Concomitant]
     Indication: HEPATITIS C
     Dates: start: 20120418

REACTIONS (5)
  - Anaemia [Not Recovered/Not Resolved]
  - Renal disorder [Unknown]
  - Dry skin [Not Recovered/Not Resolved]
  - Fatigue [Unknown]
  - Rash [Not Recovered/Not Resolved]
